FAERS Safety Report 7453195-X (Version None)
Quarter: 2011Q2

REPORT INFORMATION
  Report Type: 
  Country: None (occurrence: None)
  Receive Date: 20110502
  Receipt Date: 20110428
  Transmission Date: 20111010
  Serious: Yes (Death, Hospitalization, Other)
  Sender: FDA-Public Use
  Company Number: US-ABBOTT-11P-163-0722231-00

PATIENT
  Sex: Female

DRUGS (1)
  1. HYDROCODONE BITARTRATE [Suspect]
     Indication: PRODUCT USED FOR UNKNOWN INDICATION
     Dates: start: 20090601

REACTIONS (5)
  - CONVULSION [None]
  - CLOSTRIDIUM DIFFICILE SEPSIS [None]
  - CLOSTRIDIAL INFECTION [None]
  - PNEUMONIA [None]
  - URINARY TRACT INFECTION [None]
